FAERS Safety Report 18971699 (Version 2)
Quarter: 2021Q2

REPORT INFORMATION
  Report Type: Spontaneous
  Country: CH (occurrence: CH)
  Receive Date: 20210304
  Receipt Date: 20210414
  Transmission Date: 20210717
  Serious: Yes (Hospitalization, Other)
  Sender: FDA-Public Use
  Company Number: CH-ABBVIE-21K-151-3799439-00

PATIENT
  Age: 48 Year
  Sex: Female
  Weight: 61 kg

DRUGS (7)
  1. VITARUBIN [Concomitant]
     Active Substance: CYANOCOBALAMIN
     Indication: PRODUCT USED FOR UNKNOWN INDICATION
     Dosage: NASAL SPRAY 5 MG/ML
     Route: 045
     Dates: start: 20201127
  2. RINVOQ [Suspect]
     Active Substance: UPADACITINIB
     Indication: INFLAMMATORY BOWEL DISEASE
     Dosage: 3 TABLETS IN THE MORNING
     Route: 048
     Dates: start: 20201204, end: 20210111
  3. RINVOQ [Suspect]
     Active Substance: UPADACITINIB
     Indication: CROHN^S DISEASE
  4. ZOMIG [Suspect]
     Active Substance: ZOLMITRIPTAN
     Indication: PRODUCT USED FOR UNKNOWN INDICATION
     Route: 065
     Dates: start: 20201224
  5. QUANTALAN [Concomitant]
     Active Substance: CHOLESTYRAMINE
     Indication: PRODUCT USED FOR UNKNOWN INDICATION
     Dosage: 1 PACKET IN THE EVENING IF NEEDED
     Route: 048
     Dates: start: 20200708
  6. CHOLECALCIFEROL [Concomitant]
     Active Substance: CHOLECALCIFEROL
     Indication: PRODUCT USED FOR UNKNOWN INDICATION
     Route: 048
     Dates: start: 20201127
  7. COBALAMIN [Concomitant]
     Active Substance: COBALAMIN
     Indication: PRODUCT USED FOR UNKNOWN INDICATION
     Dosage: 1000 MCG/ML (5 AMP 1 ML)
     Route: 050
     Dates: start: 20201127

REACTIONS (21)
  - Tachycardia [Unknown]
  - Platelet count increased [Unknown]
  - Off label use [Unknown]
  - Inflammation [Recovering/Resolving]
  - Gamma-glutamyltransferase increased [Unknown]
  - COVID-19 [Unknown]
  - Ulcer [Recovered/Resolved]
  - Lymphocyte count decreased [Unknown]
  - Haematocrit decreased [Unknown]
  - Decubitus ulcer [Unknown]
  - Abdominal pain [Recovered/Resolved]
  - Liver disorder [Unknown]
  - Flatulence [Recovered/Resolved]
  - Renal failure [Recovered/Resolved]
  - Intestinal anastomosis complication [Recovered/Resolved]
  - Peritonitis [Recovered/Resolved]
  - Necrosis [Recovered/Resolved]
  - Lymphocyte count increased [Unknown]
  - Anastomotic complication [Recovered/Resolved]
  - Haemoglobin decreased [Unknown]
  - Red blood cell count decreased [Unknown]

NARRATIVE: CASE EVENT DATE: 2021
